FAERS Safety Report 7941220-9 (Version None)
Quarter: 2011Q4

REPORT INFORMATION
  Report Type: 
  Country: None (occurrence: None)
  Receive Date: 20111128
  Receipt Date: 20111116
  Transmission Date: 20120403
  Serious: Yes (Other)
  Sender: FDA-Public Use
  Company Number: JP-JNJFOC-20110106760

PATIENT
  Sex: Male

DRUGS (7)
  1. RISPERDAL [Suspect]
     Indication: DELIRIUM
     Route: 048
     Dates: start: 20110112, end: 20110119
  2. THEO-DUR [Concomitant]
     Route: 048
  3. AMLODIPINE [Concomitant]
     Route: 048
  4. CLONAZEPAM [Concomitant]
     Route: 048
  5. GAMOFA [Concomitant]
     Route: 048
  6. URSO 250 [Concomitant]
     Route: 048
  7. HIRUBULIN [Concomitant]
     Route: 048

REACTIONS (2)
  - LOSS OF CONSCIOUSNESS [None]
  - DEPRESSED LEVEL OF CONSCIOUSNESS [None]
